FAERS Safety Report 20524634 (Version 3)
Quarter: 2022Q1

REPORT INFORMATION
  Report Type: Report from Study
  Country: CN (occurrence: CN)
  Receive Date: 20220228
  Receipt Date: 20220322
  Transmission Date: 20220423
  Serious: Yes (Life-Threatening)
  Sender: FDA-Public Use
  Company Number: CN-BoehringerIngelheim-2022-BI-154923

PATIENT
  Age: 55 Year
  Sex: Male
  Weight: 55 kg

DRUGS (10)
  1. TENECTEPLASE [Suspect]
     Active Substance: TENECTEPLASE
     Indication: Ischaemic stroke
     Route: 042
     Dates: start: 20220219, end: 20220219
  2. TROXERUTIN [Concomitant]
     Active Substance: TROXERUTIN
     Indication: Ischaemic stroke
     Route: 042
     Dates: start: 20220219, end: 20220220
  3. EDARAVONE [Concomitant]
     Active Substance: EDARAVONE
     Indication: Ischaemic stroke
     Route: 042
     Dates: start: 20220219, end: 20220220
  4. NIMODIPINE [Concomitant]
     Active Substance: NIMODIPINE
     Indication: Pneumonia
     Route: 042
     Dates: start: 20220220, end: 20220220
  5. PROTAMINE [Concomitant]
     Active Substance: PROTAMINE
     Indication: Haemostasis
     Route: 042
     Dates: start: 20220220, end: 20220220
  6. ACEGLUTAMIDE [Concomitant]
     Active Substance: ACEGLUTAMIDE
     Indication: Ischaemic stroke
     Route: 045
     Dates: start: 20220220, end: 20220220
  7. TRANEXAMIC ACID [Concomitant]
     Active Substance: TRANEXAMIC ACID
     Indication: Dehydration
     Route: 042
     Dates: start: 20220220, end: 20220220
  8. CARBOHYDRATES\ELECTROLYTES NOS [Concomitant]
     Active Substance: CARBOHYDRATES\ELECTROLYTES NOS
     Indication: Drug therapy
     Route: 042
     Dates: start: 20220220, end: 20220220
  9. GANGLIOSIDE GM1 [Concomitant]
     Active Substance: GANGLIOSIDE GM1
     Indication: Ischaemic stroke
     Route: 042
     Dates: start: 20220219, end: 20220219
  10. NALMEFENE [Concomitant]
     Active Substance: NALMEFENE
     Indication: Ischaemic stroke
     Route: 042
     Dates: start: 20220219, end: 20220219

REACTIONS (3)
  - Cerebral haematoma [Not Recovered/Not Resolved]
  - Cerebral haemorrhage [Not Recovered/Not Resolved]
  - Brain oedema [Not Recovered/Not Resolved]

NARRATIVE: CASE EVENT DATE: 20220220
